FAERS Safety Report 24576441 (Version 3)
Quarter: 2025Q2

REPORT INFORMATION
  Report Type: Report from Study
  Country: JP (occurrence: JP)
  Receive Date: 20241104
  Receipt Date: 20250527
  Transmission Date: 20250717
  Serious: Yes (Death)
  Sender: AKEBIA THERAPEUTICS
  Company Number: JP-MTPC-MTPC2023-0014756

PATIENT
  Age: 83 Year
  Sex: Male
  Weight: 54.3 kg

DRUGS (12)
  1. VADADUSTAT [Suspect]
     Active Substance: VADADUSTAT
     Indication: Nephrogenic anaemia
     Dosage: 300 MILLIGRAM, QD
     Route: 048
     Dates: start: 20220303, end: 20221013
  2. VADADUSTAT [Suspect]
     Active Substance: VADADUSTAT
     Dosage: 450 MILLIGRAM, QD
     Route: 048
     Dates: start: 20221014, end: 20240603
  3. AMITIZA [Concomitant]
     Active Substance: LUBIPROSTONE
     Indication: Illness
     Dosage: 24 MICROGRAM, QD
     Route: 048
     Dates: start: 20220409
  4. DARBEPOETIN ALFA [Concomitant]
     Active Substance: DARBEPOETIN ALFA
     Indication: Nephrogenic anaemia
     Dosage: 30 MICROGRAM, 1/WEEK
     Route: 042
     Dates: end: 20220305
  5. CILNIDIPINE [Concomitant]
     Active Substance: CILNIDIPINE
     Indication: Product used for unknown indication
     Dosage: 5 MILLIGRAM, QD
     Route: 048
  6. LANTHANUM CARBONATE [Concomitant]
     Active Substance: LANTHANUM CARBONATE
     Indication: Product used for unknown indication
     Dosage: 1500 MILLIGRAM, QD
     Route: 048
  7. BIXALOMER [Concomitant]
     Active Substance: BIXALOMER
     Indication: Product used for unknown indication
     Dosage: 750 MILLIGRAM, QD
     Route: 048
     Dates: end: 20220422
  8. LINAGLIPTIN [Concomitant]
     Active Substance: LINAGLIPTIN
     Indication: Illness
     Dosage: 5 MILLIGRAM, QD
     Route: 048
  9. VONOPRAZAN FUMARATE [Concomitant]
     Active Substance: VONOPRAZAN FUMARATE
     Indication: Illness
     Dosage: 10 MILLIGRAM, QD
     Route: 048
     Dates: end: 20220422
  10. REBAMIPIDE [Concomitant]
     Active Substance: REBAMIPIDE
     Indication: Illness
     Dosage: 300 MILLIGRAM, QD
     Route: 048
  11. FUROSEMIDE [Concomitant]
     Active Substance: FUROSEMIDE
     Indication: Illness
     Dosage: 40 MILLIGRAM, QD
     Route: 048
  12. ATORVASTATIN CALCIUM TRIHYDRATE [Concomitant]
     Active Substance: ATORVASTATIN CALCIUM TRIHYDRATE
     Indication: Illness
     Dosage: 10 MILLIGRAM, QD
     Route: 048

REACTIONS (1)
  - Prostate cancer [Fatal]

NARRATIVE: CASE EVENT DATE: 20220812
